FAERS Safety Report 16815970 (Version 1)
Quarter: 2019Q3

REPORT INFORMATION
  Report Type: Spontaneous
  Country: US (occurrence: US)
  Receive Date: 20190917
  Receipt Date: 20190917
  Transmission Date: 20191005
  Serious: No
  Sender: FDA-Public Use
  Company Number: US-ALLERGAN-1916650US

PATIENT
  Sex: Female
  Weight: 63.49 kg

DRUGS (1)
  1. LINZESS [Suspect]
     Active Substance: LINACLOTIDE
     Indication: CONSTIPATION
     Dosage: 145 ?G, QAM
     Route: 048
     Dates: start: 2017

REACTIONS (5)
  - Upper limb fracture [Not Recovered/Not Resolved]
  - Intentional product misuse [Unknown]
  - Constipation [Unknown]
  - Drug ineffective [Unknown]
  - Product packaging quantity issue [Unknown]

NARRATIVE: CASE EVENT DATE: 2019
